FAERS Safety Report 7864278-4 (Version None)
Quarter: 2011Q4

REPORT INFORMATION
  Report Type: 
  Country: None (occurrence: None)
  Receive Date: 20111028
  Receipt Date: 20101004
  Transmission Date: 20120403
  Serious: No
  Sender: FDA-Public Use
  Company Number: US-GLAXOSMITHKLINE-A0884765A

PATIENT
  Age: 43 Year
  Sex: Female

DRUGS (8)
  1. SEREVENT [Suspect]
     Indication: ASTHMA
     Dosage: 1PUFF TWICE PER DAY
     Route: 055
     Dates: start: 19990101
  2. PRILOSEC [Concomitant]
  3. FLOVENT [Suspect]
     Dates: start: 19980101
  4. NASACORT AQ [Concomitant]
  5. FLOVENT [Concomitant]
  6. THYROID MEDICATION [Concomitant]
  7. REGLAN [Concomitant]
  8. COLACE [Concomitant]
     Indication: DIARRHOEA

REACTIONS (3)
  - DRUG INEFFECTIVE [None]
  - PRODUCT QUALITY ISSUE [None]
  - WHEEZING [None]
